FAERS Safety Report 4906698-3 (Version None)
Quarter: 2006Q1

REPORT INFORMATION
  Report Type: 
  Country: None (occurrence: None)
  Receive Date: 20060207
  Receipt Date: 20060120
  Transmission Date: 20060701
  Serious: Yes (Death, Other)
  Sender: FDA-Public Use
  Company Number: JP200601003792

PATIENT
  Age: 46 Year
  Sex: Female

DRUGS (2)
  1. HUMALOG [Suspect]
     Indication: DIABETES MELLITUS
     Dosage: 20 U, DAILY (1/D)
  2. HUMACART NPH(HUMAN INSULIN (RDNA ORIGIN) NPH [Suspect]
     Indication: DIABETES MELLITUS
     Dosage: 8 U, DAILY (1/D)

REACTIONS (9)
  - AORTIC DISSECTION [None]
  - ARTERIOSCLEROSIS [None]
  - BLOOD GLUCOSE INCREASED [None]
  - CARDIO-RESPIRATORY ARREST [None]
  - DIARRHOEA [None]
  - DIZZINESS [None]
  - FALL [None]
  - MALAISE [None]
  - NAUSEA [None]
